FAERS Safety Report 8154050-2 (Version None)
Quarter: 2012Q1

REPORT INFORMATION
  Report Type: 
  Country: None (occurrence: None)
  Receive Date: 20120221
  Receipt Date: 20120210
  Transmission Date: 20120608
  Serious: Yes (Other)
  Sender: FDA-Public Use
  Company Number: FR-JNJFOC-20120206054

PATIENT
  Sex: Male

DRUGS (12)
  1. ABIRATERONE ACETATE [Suspect]
     Route: 048
  2. ASPEGIC 325 [Concomitant]
     Route: 065
  3. ZOLPIDEM [Concomitant]
     Route: 065
  4. EFFEXOR [Interacting]
     Indication: DEPRESSION
     Route: 065
  5. CLORAZEPATE DIPOTASSIUM [Concomitant]
     Route: 065
  6. IMODIUM [Concomitant]
     Route: 065
  7. ABIRATERONE ACETATE [Suspect]
     Indication: PROSTATE CANCER
     Route: 048
     Dates: start: 20110401
  8. CRESTOR [Concomitant]
     Indication: HYPERCHOLESTEROLAEMIA
     Route: 065
  9. IRBESARTAN [Concomitant]
     Indication: HYPERTENSION
     Route: 065
  10. ATRIPLA [Concomitant]
     Indication: HIV INFECTION
     Route: 065
  11. CORTICOSTEROID [Concomitant]
     Indication: PRODUCT USED FOR UNKNOWN INDICATION
     Route: 065
  12. PROZAC [Interacting]
     Indication: DEPRESSION
     Route: 048

REACTIONS (2)
  - MANIA [None]
  - DRUG INTERACTION [None]
